FAERS Safety Report 5701639-3 (Version None)
Quarter: 2008Q2

REPORT INFORMATION
  Report Type: 
  Country: None (occurrence: None)
  Receive Date: 20080409
  Receipt Date: 20080409
  Transmission Date: 20081010
  Serious: Yes (Other)
  Sender: FDA-Public Use
  Company Number: None

PATIENT
  Age: 30 Year
  Sex: Female
  Weight: 77.1115 kg

DRUGS (1)
  1. MONISTAT 3 [Suspect]
     Indication: FUNGAL INFECTION
     Dosage: 1 APPLICATOR FULL  1X FOR 3 NIGHTS
     Dates: start: 20080305, end: 20080407

REACTIONS (3)
  - APPLICATION SITE IRRITATION [None]
  - VULVOVAGINAL BURNING SENSATION [None]
  - VULVOVAGINAL PRURITUS [None]
